FAERS Safety Report 8923482 (Version 1)
Quarter: 2012Q4

REPORT INFORMATION
  Report Type: 
  Country: US (occurrence: US)
  Receive Date: 20121123
  Receipt Date: 20121123
  Transmission Date: 20130627
  Serious: Yes (Other)
  Sender: FDA-Public Use
  Company Number: US-PFIZER INC-2012292271

PATIENT
  Age: 62 Year
  Sex: Female
  Weight: 44.9 kg

DRUGS (6)
  1. EFFEXOR XR [Suspect]
     Indication: MAJOR DEPRESSION
     Dosage: 150 mg, 1x/day
     Route: 048
     Dates: start: 2002
  2. PROZAC [Suspect]
     Dosage: UNK
  3. IBUPROFEN [Concomitant]
     Dosage: 800 mg, UNK
  4. LISINOPRIL [Concomitant]
     Indication: BLOOD PRESSURE HIGH
     Dosage: UNK
  5. LORTAB [Concomitant]
     Dosage: 7.5/500 mg, UNK
  6. LYRICA [Concomitant]
     Dosage: 75 mg, UNK

REACTIONS (9)
  - Haemorrhage [Unknown]
  - Rectal haemorrhage [Unknown]
  - Diverticulum [Unknown]
  - Disturbance in attention [Unknown]
  - Tremor [Unknown]
  - Malaise [Unknown]
  - Nausea [Unknown]
  - Vomiting [Unknown]
  - Eating disorder [Unknown]
